FAERS Safety Report 5507761-9 (Version None)
Quarter: 2007Q4

REPORT INFORMATION
  Report Type: 
  Country: None (occurrence: None)
  Receive Date: 20071106
  Receipt Date: 20071023
  Transmission Date: 20080405
  Serious: Yes (Life-Threatening, Hospitalization, Disabling)
  Sender: FDA-Public Use
  Company Number: GB-AMGEN-US243522

PATIENT
  Age: 56 Year
  Sex: Female

DRUGS (5)
  1. ENBREL [Suspect]
     Indication: RHEUMATOID ARTHRITIS
     Route: 058
     Dates: start: 20070601, end: 20070824
  2. PREMARIN [Concomitant]
     Indication: MENOPAUSAL SYMPTOMS
     Dosage: 1.25MG, FREQUENCY UNKNOWN
     Route: 048
     Dates: start: 20070824
  3. METHOTREXATE [Concomitant]
     Indication: RHEUMATOID ARTHRITIS
     Dosage: 32.5MG, FREQUENCY UNKNOWN
     Route: 048
  4. AMLODIPINE [Concomitant]
     Indication: HYPERTENSION
     Dosage: 10MG, FREQUENCY UNKNOWN
     Dates: start: 20030101
  5. FRUSEMIDE [Concomitant]
     Indication: JOINT SWELLING
     Dosage: 40MG, FREQUENCY UNKNOWN
     Route: 048
     Dates: start: 19970101

REACTIONS (3)
  - CEREBRAL HAEMORRHAGE [None]
  - CEREBROVASCULAR ACCIDENT [None]
  - TREMOR [None]
